FAERS Safety Report 6674884-0 (Version None)
Quarter: 2010Q2

REPORT INFORMATION
  Report Type: 
  Country: None (occurrence: None)
  Receive Date: 20100409
  Receipt Date: 20100331
  Transmission Date: 20101027
  Serious: Yes (Hospitalization)
  Sender: FDA-Public Use
  Company Number: NL-WYE-G05575310

PATIENT
  Sex: Male

DRUGS (1)
  1. TORISEL [Suspect]
     Indication: MANTLE CELL LYMPHOMA
     Dosage: 3 TIMER 175 MG AND 3 TIMES 75 MG
     Dates: start: 20100205, end: 20100215

REACTIONS (4)
  - CONDITION AGGRAVATED [None]
  - HEPATIC FUNCTION ABNORMAL [None]
  - MALAISE [None]
  - THROMBOCYTOPENIA [None]
